FAERS Safety Report 6822079-X (Version None)
Quarter: 2010Q3

REPORT INFORMATION
  Report Type: 
  Country: None (occurrence: None)
  Receive Date: 20100706
  Receipt Date: 20100622
  Transmission Date: 20110219
  Serious: Yes (Hospitalization)
  Sender: FDA-Public Use
  Company Number: CTI_01207_2010

PATIENT
  Sex: Male

DRUGS (2)
  1. MEIACT (MEIACT MS (CEFDITOREN PIVOXIL)) (NOT SPECIFIED) [Suspect]
     Indication: OTITIS MEDIA
     Dosage: (DF ORAL)
     Route: 048
     Dates: start: 20090918, end: 20090919
  2. FLOMAX [Suspect]
     Indication: RESPIRATORY TRACT INFECTION
     Dosage: (DF ORAL)
     Route: 048
     Dates: start: 20090914, end: 20090918

REACTIONS (4)
  - CARNITINE DECREASED [None]
  - GRAND MAL CONVULSION [None]
  - HYPOGLYCAEMIA [None]
  - MOANING [None]
